FAERS Safety Report 5514385-6 (Version None)
Quarter: 2007Q4

REPORT INFORMATION
  Report Type: 
  Country: None (occurrence: None)
  Receive Date: 20071113
  Receipt Date: 20070503
  Transmission Date: 20080405
  Serious: No
  Sender: FDA-Public Use
  Company Number: A0649892A

PATIENT
  Age: 81 Year
  Sex: Male

DRUGS (8)
  1. COREG [Suspect]
     Dosage: 3.125MG TWICE PER DAY
     Route: 048
     Dates: start: 20070327
  2. DIOVAN [Concomitant]
  3. ZETIA [Concomitant]
  4. WELCHOL [Concomitant]
  5. METFORMIN HCL [Concomitant]
  6. PROSCAR [Concomitant]
  7. DETROL [Concomitant]
  8. ASPIRIN [Concomitant]

REACTIONS (1)
  - VISION BLURRED [None]
